FAERS Safety Report 19760934 (Version 1)
Quarter: 2021Q3

REPORT INFORMATION
  Report Type: Spontaneous
  Country: US (occurrence: US)
  Receive Date: 20210829
  Receipt Date: 20210829
  Transmission Date: 20211014
  Serious: Yes (Life-Threatening)
  Sender: FDA-Public Use
  Company Number: None

PATIENT
  Age: 66 Year
  Sex: Male
  Weight: 74.25 kg

DRUGS (1)
  1. REGEN?COV [Suspect]
     Active Substance: CASIRIVIMAB\IMDEVIMAB
     Indication: COVID-19

REACTIONS (7)
  - Hyperhidrosis [None]
  - Dizziness [None]
  - Extrasystoles [None]
  - Heart rate irregular [None]
  - Fall [None]
  - Near death experience [None]
  - Limb discomfort [None]

NARRATIVE: CASE EVENT DATE: 20210828
